FAERS Safety Report 8353851-5 (Version None)
Quarter: 2012Q2

REPORT INFORMATION
  Report Type: 
  Country: None (occurrence: None)
  Receive Date: 20120511
  Receipt Date: 20120111
  Transmission Date: 20120825
  Serious: No
  Sender: FDA-Public Use
  Company Number: US-GLAXOSMITHKLINE-A0960989A

PATIENT
  Age: 75 Year
  Sex: Female

DRUGS (5)
  1. XELODA [Concomitant]
  2. FASLODEX [Concomitant]
  3. AREDIA [Concomitant]
  4. TYKERB [Suspect]
     Indication: BRAIN NEOPLASM
     Dosage: 5TAB PER DAY
     Route: 048
     Dates: start: 20100101
  5. HERCEPTIN [Concomitant]

REACTIONS (2)
  - DIARRHOEA [None]
  - PRODUCT QUALITY ISSUE [None]
